FAERS Safety Report 7591028-1 (Version None)
Quarter: 2011Q3

REPORT INFORMATION
  Report Type: 
  Country: None (occurrence: None)
  Receive Date: 20110705
  Receipt Date: 20110630
  Transmission Date: 20111222
  Serious: Yes (Hospitalization, Other)
  Sender: FDA-Public Use
  Company Number: US-PFIZER INC-2011069793

PATIENT
  Sex: Male

DRUGS (4)
  1. AMITRIPTYLINE [Concomitant]
     Indication: INSOMNIA
     Dosage: UNK
     Dates: start: 20050101
  2. OMEPRAZOLE [Concomitant]
     Indication: GASTROOESOPHAGEAL REFLUX DISEASE
     Dosage: UNK
     Dates: start: 20080101, end: 20100101
  3. CHANTIX [Suspect]
     Indication: SMOKING CESSATION THERAPY
     Dosage: 1MG PACK AND O.5MG
     Dates: start: 20080401, end: 20080408
  4. POLYETHYLENE GLYCOL [Concomitant]
     Dosage: UNK
     Dates: start: 20070101, end: 20100101

REACTIONS (4)
  - AGGRESSION [None]
  - UPPER LIMB FRACTURE [None]
  - DEPRESSION [None]
  - LOSS OF CONSCIOUSNESS [None]
